FAERS Safety Report 9723233 (Version 1)
Quarter: 2013Q4

REPORT INFORMATION
  Report Type: Spontaneous
  Country: US (occurrence: US)
  Receive Date: 20131202
  Receipt Date: 20131202
  Transmission Date: 20140711
  Serious: Yes (Other)
  Sender: FDA-Public Use
  Company Number: US-GILEAD-2008-0019320

PATIENT
  Age: 32 Year
  Sex: Male

DRUGS (4)
  1. TRUVADA [Suspect]
     Indication: HIV INFECTION
  2. VIREAD [Concomitant]
     Indication: HIV INFECTION
  3. COMBIVIR [Concomitant]
     Indication: HIV INFECTION
  4. KALETRA [Concomitant]
     Indication: HIV INFECTION

REACTIONS (2)
  - Aspartate aminotransferase increased [None]
  - Alanine aminotransferase increased [None]
